FAERS Safety Report 5114056-4 (Version None)
Quarter: 2006Q3

REPORT INFORMATION
  Report Type: 
  Country: None (occurrence: None)
  Receive Date: 20060925
  Receipt Date: 20060908
  Transmission Date: 20061208
  Serious: Yes (Death, Hospitalization)
  Sender: FDA-Public Use
  Company Number: TH-MERCK-0609THA00003

PATIENT
  Age: 71 Year
  Sex: Female

DRUGS (16)
  1. COZAAR [Suspect]
     Indication: HYPERTENSION
     Route: 048
     Dates: start: 20060101, end: 20060816
  2. FOLIC ACID [Concomitant]
     Route: 048
     Dates: start: 20060808
  3. DIETARY SUPPLEMENT (UNSPECIFIED) [Concomitant]
     Indication: ROUTINE HEALTH MAINTENANCE
     Route: 048
     Dates: start: 20060808
  4. [COMPOSITION UNSPECIFIED] [Concomitant]
     Indication: VITAMIN SUPPLEMENTATION
     Route: 048
     Dates: start: 20060808
  5. ATORVASTATIN CALCIUM [Concomitant]
     Indication: DYSLIPIDAEMIA
     Route: 048
     Dates: start: 20060101
  6. FUROSEMIDE [Concomitant]
     Indication: HYPERTENSION
     Route: 048
     Dates: start: 20060101
  7. FUROSEMIDE [Concomitant]
     Indication: OEDEMA
     Route: 048
     Dates: start: 20060101
  8. [COMPOSITION UNSPECIFIED] [Concomitant]
     Indication: ROUTINE HEALTH MAINTENANCE
     Route: 048
     Dates: start: 20060808, end: 20060818
  9. RISPERIDONE [Concomitant]
     Indication: DEPRESSION
     Route: 048
     Dates: start: 20060101
  10. TRAZODONE HYDROCHLORIDE [Concomitant]
     Indication: DEPRESSION
     Route: 048
     Dates: start: 20060101
  11. QUETIAPINE FUMARATE [Concomitant]
     Indication: DEPRESSION
     Route: 048
     Dates: start: 20060101
  12. SODIUM CHLORIDE [Concomitant]
     Route: 048
     Dates: start: 20060808, end: 20060817
  13. GLICLAZIDE [Concomitant]
     Indication: DIABETES MELLITUS
     Route: 048
     Dates: start: 20060101
  14. METFORMIN [Concomitant]
     Indication: DIABETES MELLITUS
     Route: 048
     Dates: start: 20060101
  15. INSULIN HUMAN, ISOPHANE [Concomitant]
     Indication: DIABETES MELLITUS
     Route: 058
     Dates: start: 20060811, end: 20060817
  16. CIPROFLOXACIN [Concomitant]
     Route: 048
     Dates: start: 20060815

REACTIONS (2)
  - DEPRESSED LEVEL OF CONSCIOUSNESS [None]
  - RENAL FAILURE ACUTE [None]
